FAERS Safety Report 4493595-3 (Version None)
Quarter: 2004Q4

REPORT INFORMATION
  Report Type: 
  Country: None (occurrence: None)
  Receive Date: 20041103
  Receipt Date: 20041103
  Transmission Date: 20050328
  Serious: Yes (Life-Threatening)
  Sender: FDA-Public Use
  Company Number: None

PATIENT
  Sex: Male
  Weight: 37.195 kg

DRUGS (1)
  1. PERITHRIN [Suspect]
     Indication: LICE INFESTATION
     Dosage: 1 TIME
     Dates: start: 20000101, end: 20000101

REACTIONS (1)
  - ANAPHYLACTIC REACTION [None]
